FAERS Safety Report 4817001-1 (Version None)
Quarter: 2005Q4

REPORT INFORMATION
  Report Type: 
  Country: None (occurrence: None)
  Receive Date: 20051101
  Receipt Date: 20051025
  Transmission Date: 20060501
  Serious: Yes (Other)
  Sender: FDA-Public Use
  Company Number: US-GLAXOSMITHKLINE-A0580130A

PATIENT
  Age: 15 Year
  Sex: Female

DRUGS (4)
  1. LAMOTRIGINE [Suspect]
     Indication: DRUG USE FOR UNKNOWN INDICATION
     Dosage: 200MG PER DAY
     Route: 065
  2. LITHIUM [Suspect]
     Indication: DRUG USE FOR UNKNOWN INDICATION
     Route: 065
  3. ABILIFY [Concomitant]
     Indication: DRUG USE FOR UNKNOWN INDICATION
  4. KLONOPIN [Concomitant]
     Indication: ANXIETY

REACTIONS (5)
  - ANXIETY [None]
  - HYPOTHYROIDISM [None]
  - PAIN IN EXTREMITY [None]
  - RESTLESSNESS [None]
  - VISION BLURRED [None]
